FAERS Safety Report 8520821 (Version 18)
Quarter: 2013Q2

REPORT INFORMATION
  Report Type: Spontaneous
  Country: US (occurrence: US)
  Receive Date: 20120419
  Receipt Date: 20130617
  Transmission Date: 20140414
  Serious: Yes (Hospitalization)
  Sender: FDA-Public Use
  Company Number: US-ASTRAZENECA-2011SE41450

PATIENT
  Age: 60 Year
  Sex: Female

DRUGS (84)
  1. NEXIUM [Suspect]
     Indication: GASTROOESOPHAGEAL REFLUX DISEASE
     Route: 048
     Dates: start: 1990, end: 2011
  2. NEXIUM [Suspect]
     Indication: ULCER
     Route: 048
     Dates: start: 1990, end: 2011
  3. NEXIUM [Suspect]
     Indication: GASTRIC DISORDER
     Route: 048
     Dates: start: 1990, end: 2011
  4. NEXIUM [Suspect]
     Indication: PAIN
     Route: 048
     Dates: start: 1990, end: 2011
  5. NEXIUM [Suspect]
     Indication: GASTROOESOPHAGEAL REFLUX DISEASE
     Dosage: 20 OR 40 MG ONCE A DAY
     Route: 048
     Dates: start: 2001, end: 2011
  6. NEXIUM [Suspect]
     Indication: ULCER
     Dosage: 20 OR 40 MG ONCE A DAY
     Route: 048
     Dates: start: 2001, end: 2011
  7. NEXIUM [Suspect]
     Indication: GASTRIC DISORDER
     Dosage: 20 OR 40 MG ONCE A DAY
     Route: 048
     Dates: start: 2001, end: 2011
  8. NEXIUM [Suspect]
     Indication: PAIN
     Dosage: 20 OR 40 MG ONCE A DAY
     Route: 048
     Dates: start: 2001, end: 2011
  9. NEXIUM [Suspect]
     Indication: GASTROOESOPHAGEAL REFLUX DISEASE
     Route: 048
     Dates: start: 20050225
  10. NEXIUM [Suspect]
     Indication: ULCER
     Route: 048
     Dates: start: 20050225
  11. NEXIUM [Suspect]
     Indication: GASTRIC DISORDER
     Route: 048
     Dates: start: 20050225
  12. NEXIUM [Suspect]
     Indication: PAIN
     Route: 048
     Dates: start: 20050225
  13. NEXIUM [Suspect]
     Indication: GASTROOESOPHAGEAL REFLUX DISEASE
     Route: 048
     Dates: start: 20090622
  14. NEXIUM [Suspect]
     Indication: ULCER
     Route: 048
     Dates: start: 20090622
  15. NEXIUM [Suspect]
     Indication: GASTRIC DISORDER
     Route: 048
     Dates: start: 20090622
  16. NEXIUM [Suspect]
     Indication: PAIN
     Route: 048
     Dates: start: 20090622
  17. NEXIUM [Suspect]
     Indication: GASTROOESOPHAGEAL REFLUX DISEASE
     Route: 048
     Dates: start: 20100817
  18. NEXIUM [Suspect]
     Indication: ULCER
     Route: 048
     Dates: start: 20100817
  19. NEXIUM [Suspect]
     Indication: GASTRIC DISORDER
     Route: 048
     Dates: start: 20100817
  20. NEXIUM [Suspect]
     Indication: PAIN
     Route: 048
     Dates: start: 20100817
  21. NEXIUM [Suspect]
     Indication: GASTROOESOPHAGEAL REFLUX DISEASE
     Route: 048
     Dates: end: 201201
  22. NEXIUM [Suspect]
     Indication: ULCER
     Route: 048
     Dates: end: 201201
  23. NEXIUM [Suspect]
     Indication: GASTRIC DISORDER
     Route: 048
     Dates: end: 201201
  24. NEXIUM [Suspect]
     Indication: PAIN
     Route: 048
     Dates: end: 201201
  25. PRILOSEC [Suspect]
     Route: 048
     Dates: start: 199703
  26. PRILOSEC [Suspect]
     Route: 048
  27. ZANTAC [Concomitant]
     Dosage: ONCE A DAY
     Dates: start: 1992, end: 1994
  28. FOSMAX/ALENDRONATE [Concomitant]
     Indication: OSTEOPOROSIS
     Dates: start: 20120604
  29. MESTRON [Concomitant]
     Indication: MUSCLE DISORDER
  30. MESTRON [Concomitant]
     Indication: MUSCLE DISORDER
     Dates: start: 20100817
  31. CELLCEPT [Concomitant]
     Indication: MUSCLE DISORDER
     Route: 048
  32. CELLCEPT [Concomitant]
     Indication: MUSCLE DISORDER
     Route: 048
     Dates: start: 20061116
  33. PREMARIN [Concomitant]
     Indication: HORMONE THERAPY
     Dates: start: 199703
  34. PREMARIN [Concomitant]
     Indication: HORMONE THERAPY
  35. PREMARIN [Concomitant]
     Indication: HORMONE THERAPY
     Dosage: 625
     Dates: start: 20061116
  36. PREMARIN [Concomitant]
     Indication: HORMONE THERAPY
     Dates: start: 20070308
  37. PREMARIN [Concomitant]
     Indication: HORMONE THERAPY
     Dates: start: 20090622
  38. PREMARIN [Concomitant]
     Indication: HORMONE THERAPY
     Dates: start: 20100817
  39. CAVEDILOL/CARVEDILOL [Concomitant]
     Indication: BLOOD PRESSURE
  40. CAVEDILOL/CARVEDILOL [Concomitant]
     Indication: BLOOD PRESSURE
     Route: 048
  41. LORATADINE [Concomitant]
     Indication: SINUS DISORDER
     Route: 048
     Dates: start: 20061019
  42. LORATADINE [Concomitant]
     Indication: SINUS DISORDER
     Route: 048
     Dates: start: 20120511
  43. SINGULAIR [Concomitant]
     Indication: SINUS DISORDER
     Dates: start: 20120418
  44. SINGULAIR [Concomitant]
     Indication: SINUS DISORDER
     Route: 048
     Dates: start: 20120511
  45. LIPITOR [Concomitant]
     Indication: BLOOD CHOLESTEROL
     Dates: start: 20120418
  46. LIPITOR [Concomitant]
     Indication: BLOOD CHOLESTEROL
     Route: 048
     Dates: start: 20120511
  47. ASPIRIN [Concomitant]
     Indication: CARDIAC DISORDER
     Route: 048
     Dates: start: 20120511
  48. PANTOPRAZOLE/PROTONIX [Concomitant]
     Indication: GASTRIC DISORDER
     Route: 048
     Dates: start: 20120801
  49. PANTOPRAZOLE/PROTONIX [Concomitant]
     Indication: GASTRIC DISORDER
     Route: 048
     Dates: start: 20120511
  50. DIAZEPAM [Concomitant]
     Indication: SLEEP DISORDER
     Dates: start: 20110727
  51. DIAZEPAM [Concomitant]
     Indication: DEPRESSION
     Dates: start: 20110727
  52. SUCRALFATE [Concomitant]
     Indication: GASTRITIS PROPHYLAXIS
     Dosage: 1 GM 1 TABLET HALF HOUR BEFORE EACH MEAL
  53. PRISTIQ [Concomitant]
     Indication: POOR QUALITY SLEEP
     Dates: start: 20120418
  54. GABAPENTIN/NEURONTIN [Concomitant]
     Indication: PAIN
     Dates: start: 20120418
  55. GABAPENTIN/NEURONTIN [Concomitant]
     Indication: PAIN
     Route: 048
     Dates: start: 20120511
  56. HYDROCODONE [Concomitant]
     Indication: BONE PAIN
     Dosage: 5 TO 3.25 MG 6 TO 8 HOURS AS NEEDED
  57. PEPCID [Concomitant]
     Dates: start: 1992, end: 1994
  58. MESTINON [Concomitant]
     Route: 048
     Dates: start: 199703
  59. MESTINON [Concomitant]
     Route: 048
     Dates: start: 20061116
  60. MESTINON [Concomitant]
     Route: 048
     Dates: start: 20090622
  61. EFFEXOR [Concomitant]
     Route: 048
     Dates: start: 20041215
  62. CYCLOBENZAPRINE [Concomitant]
     Route: 048
     Dates: start: 20050202
  63. FLUCONAZOLE/DIFLUCAN [Concomitant]
     Route: 048
     Dates: start: 20050202
  64. ZOLOFT [Concomitant]
     Dates: start: 20061116
  65. DETROL XL [Concomitant]
     Indication: HYPERTONIC BLADDER
     Dates: start: 20061116
  66. DETROL XL [Concomitant]
     Indication: HYPERTONIC BLADDER
     Dosage: EVERY DAY
     Dates: start: 20070308
  67. ZOFRAN [Concomitant]
     Indication: DYSPHAGIA
     Dates: start: 20061116
  68. VALTREX [Concomitant]
     Dates: start: 20120604
  69. VALTREX [Concomitant]
     Route: 048
     Dates: start: 20120511
  70. ERGOCALCIFEROL [Concomitant]
     Dosage: 50000 UNITS
     Dates: start: 20120521
  71. LOVAZA [Concomitant]
     Dates: start: 20120418
  72. NORCO [Concomitant]
     Dosage: 10/325
     Dates: start: 20120910
  73. NORCO [Concomitant]
     Dosage: 10-325 MG TAKE 1 TABLET EVERY 6 HOURS AS NEEDED FOR PAIN
     Route: 048
     Dates: start: 20120910
  74. XANAX [Concomitant]
     Dates: start: 20120910
  75. XANAX [Concomitant]
     Route: 048
     Dates: start: 20120511
  76. LYRICA [Concomitant]
     Indication: NEURALGIA
     Dates: start: 20120910
  77. CYMBALTA [Concomitant]
     Indication: NEURALGIA
     Dates: start: 20120910
  78. FOSAMAX PLUS D [Concomitant]
     Dosage: 70 - 2800 MG UNIT ORAL TABLET TAKE 1 TABLET WEEKLY
     Route: 048
  79. FISH OIL [Concomitant]
     Route: 048
     Dates: start: 20120511
  80. CALTRATE [Concomitant]
     Dosage: 600 1500 MG TAKE 1 TABLET DAILY
     Route: 048
     Dates: start: 20120511
  81. CALTRATE [Concomitant]
     Dosage: 1 GM
  82. DICYCLOMINE [Concomitant]
  83. BUSPIRONE [Concomitant]
  84. VITAMIN D3 [Concomitant]

REACTIONS (31)
  - Gastric ulcer [Unknown]
  - Nasopharyngitis [Unknown]
  - Ankle fracture [Unknown]
  - Influenza [Unknown]
  - Gait disturbance [Unknown]
  - Osteoporosis [Unknown]
  - Chills [Unknown]
  - Pyrexia [Unknown]
  - Poor quality sleep [Unknown]
  - Vitamin D deficiency [Unknown]
  - Calcium deficiency [Unknown]
  - Arthritis [Unknown]
  - Gastric disorder [Unknown]
  - Dysphagia [Unknown]
  - Dyspepsia [Unknown]
  - Grief reaction [Unknown]
  - Odynophagia [Unknown]
  - Fall [Unknown]
  - Bone pain [Unknown]
  - Cataract [Unknown]
  - Pain in extremity [Unknown]
  - Rhinitis [Unknown]
  - Sinusitis [Unknown]
  - Cough [Unknown]
  - Chronic obstructive pulmonary disease [Unknown]
  - Asthma [Unknown]
  - Emphysema [Unknown]
  - Respiratory disorder [Unknown]
  - Bronchitis [Unknown]
  - Arthralgia [Unknown]
  - Depression [Unknown]
